FAERS Safety Report 5907177-7 (Version None)
Quarter: 2008Q4

REPORT INFORMATION
  Report Type: 
  Country: None (occurrence: None)
  Receive Date: 20081003
  Receipt Date: 20080922
  Transmission Date: 20090506
  Serious: Yes (Other)
  Sender: FDA-Public Use
  Company Number: BR-JNJFOC-20080905569

PATIENT
  Age: 14 Year
  Sex: Male

DRUGS (3)
  1. TOPAMAX [Suspect]
  2. TOPAMAX [Suspect]
     Indication: EPILEPSY
  3. TRILEPTAL [Concomitant]
     Indication: EPILEPSY

REACTIONS (1)
  - BRAIN OPERATION [None]
